FAERS Safety Report 4767503-1 (Version None)
Quarter: 2005Q3

REPORT INFORMATION
  Report Type: 
  Country: None (occurrence: None)
  Receive Date: 20050913
  Receipt Date: 20050902
  Transmission Date: 20060218
  Serious: Yes (Other)
  Sender: FDA-Public Use
  Company Number: US-JNJFOC-20050901398

PATIENT
  Sex: Male
  Weight: 52.5 kg

DRUGS (5)
  1. CONCERTA [Suspect]
     Route: 048
     Dates: start: 20030101
  2. KEPPRA [Suspect]
     Route: 048
     Dates: start: 20041101
  3. KEPPRA [Suspect]
     Route: 048
     Dates: start: 20041101
  4. ATENOLOL [Concomitant]
     Route: 048
     Dates: start: 20030101
  5. CORTICOSTEROID [Concomitant]
     Route: 048
     Dates: start: 20030101

REACTIONS (2)
  - HEADACHE [None]
  - INTRAOCULAR PRESSURE INCREASED [None]
